FAERS Safety Report 21989086 (Version 1)
Quarter: 2023Q1

REPORT INFORMATION
  Report Type: Spontaneous
  Country: CA (occurrence: CA)
  Receive Date: 20230214
  Receipt Date: 20230214
  Transmission Date: 20230418
  Serious: Yes (Hospitalization, Other)
  Sender: FDA-Public Use
  Company Number: CA-GSKCCFAMERS-Case-01623919_AE-91699

PATIENT

DRUGS (1)
  1. NUCALA [Suspect]
     Active Substance: MEPOLIZUMAB
     Indication: Product used for unknown indication
     Dosage: 1 MG, QOD
     Route: 042
     Dates: end: 20220103

REACTIONS (6)
  - Hospitalisation [Unknown]
  - Suicidal ideation [Unknown]
  - Malaise [Unknown]
  - Erythema [Not Recovered/Not Resolved]
  - Burning sensation [Unknown]
  - Lung disorder [Unknown]

NARRATIVE: CASE EVENT DATE: 20220103
